FAERS Safety Report 16868730 (Version 2)
Quarter: 2019Q4

REPORT INFORMATION
  Report Type: Spontaneous
  Country: IN (occurrence: IN)
  Receive Date: 20190930
  Receipt Date: 20191125
  Transmission Date: 20200122
  Serious: Yes (Hospitalization, Other)
  Sender: FDA-Public Use
  Company Number: IN-PFIZER INC-2018491520

PATIENT
  Age: 82 Year
  Sex: Male

DRUGS (3)
  1. SUTENT [Suspect]
     Active Substance: SUNITINIB MALATE
     Indication: METASTATIC RENAL CELL CARCINOMA
     Dosage: 25 MG, CYCLIC (2 WEEKS ON AND 1 WEEK OFF)
     Route: 048
     Dates: start: 20181123
  2. SUTENT [Suspect]
     Active Substance: SUNITINIB MALATE
     Dosage: 37.5 MG, UNK
     Route: 048
  3. SUTENT [Suspect]
     Active Substance: SUNITINIB MALATE
     Dosage: 25 MG, DAILY
     Route: 048

REACTIONS (7)
  - Pain [Unknown]
  - Chronic kidney disease [Unknown]
  - Dry skin [Unknown]
  - Swelling [Unknown]
  - Skin exfoliation [Unknown]
  - Type 2 diabetes mellitus [Unknown]
  - Ulcer [Unknown]
